FAERS Safety Report 14483544 (Version 8)
Quarter: 2019Q1

REPORT INFORMATION
  Report Type: Report from Study
  Country: GB (occurrence: GB)
  Receive Date: 20180204
  Receipt Date: 20190110
  Transmission Date: 20190417
  Serious: Yes (Hospitalization)
  Sender: FDA-Public Use
  Company Number: GB-BAXTER-2018BAX003819

PATIENT
  Age: 60 Year
  Sex: Female
  Weight: 52.3 kg

DRUGS (28)
  1. DECADRON [Suspect]
     Active Substance: DEXAMETHASONE
     Indication: PLASMA CELL MYELOMA
     Dosage: 40 MG, QD, DOSAGE FORM: UNKNOWN
     Route: 048
     Dates: start: 20171108, end: 20171111
  2. ADRIAMYCIN [Suspect]
     Active Substance: DOXORUBICIN HYDROCHLORIDE
     Indication: PLASMA CELL MYELOMA
     Dosage: 15 MG, QD
     Route: 042
     Dates: start: 20171108, end: 20171111
  3. NINLARO [Suspect]
     Active Substance: IXAZOMIB CITRATE
     Dosage: 2 MG, UNK
     Route: 048
  4. REVLIMID [Suspect]
     Active Substance: LENALIDOMIDE
     Indication: PLASMA CELL MYELOMA
     Dosage: 15 MG, DOSAGE FORM: UNKNOWN
     Route: 048
     Dates: start: 20170511, end: 20171019
  5. REVLIMID [Suspect]
     Active Substance: LENALIDOMIDE
     Dosage: 25 MG, UNK
     Route: 048
  6. ASA [Concomitant]
     Active Substance: ASPIRIN
     Indication: THROMBOSIS PROPHYLAXIS
     Dosage: UNK, DOSAGE FORM: UNSPECIFIED
     Route: 065
  7. CYTARABINE. [Concomitant]
     Active Substance: CYTARABINE
     Indication: PLASMA CELL MYELOMA
     Dosage: 50 MG, Q2WEEKS, DOSAGE FORM: UNKNOWN
     Route: 042
     Dates: start: 20171115, end: 20171221
  8. DECADRON [Suspect]
     Active Substance: DEXAMETHASONE
     Dosage: 20 MG, DOSAGE FORM: UNKNOWN
     Route: 048
     Dates: start: 20170413, end: 2017
  9. REVLIMID [Suspect]
     Active Substance: LENALIDOMIDE
     Dosage: 25 MG, DOSAGE FORM: UNKNOWN
     Route: 048
     Dates: start: 20170320, end: 2017
  10. HYDROCORTISONE. [Concomitant]
     Active Substance: HYDROCORTISONE
     Route: 065
  11. FILGRASTIM [Concomitant]
     Active Substance: FILGRASTIM
     Indication: PRODUCT USED FOR UNKNOWN INDICATION
     Dosage: DOSAGE FORM: UNKNOWN
     Route: 065
  12. DECADRON [Suspect]
     Active Substance: DEXAMETHASONE
     Dosage: 40 MG, 1/WEEK
     Route: 048
     Dates: start: 20170320, end: 2017
  13. NINLARO [Suspect]
     Active Substance: IXAZOMIB CITRATE
     Dosage: UNK
     Route: 048
     Dates: start: 20170706, end: 20170724
  14. METHOTREXATE. [Concomitant]
     Active Substance: METHOTREXATE
     Indication: PRODUCT USED FOR UNKNOWN INDICATION
     Route: 065
  15. ZOLEDRONIC ACID [Concomitant]
     Active Substance: ZOLEDRONIC ACID
     Indication: PLASMA CELL MYELOMA
     Dosage: 2 MG, UNK
     Dates: start: 20171125
  16. HYDROCORTISONE. [Concomitant]
     Active Substance: HYDROCORTISONE
     Indication: PLASMA CELL MYELOMA
     Dosage: 25 MG, Q2WEEKS, DOSAGE FORM: UNSPECIFIED
     Route: 065
     Dates: start: 20171115, end: 20171221
  17. METHOTREXATE. [Concomitant]
     Active Substance: METHOTREXATE
     Indication: PLASMA CELL MYELOMA
     Dosage: 12.5 MG, Q2WEEKS
     Route: 041
     Dates: start: 20171115, end: 20171221
  18. HEPARIN [Concomitant]
     Active Substance: HEPARIN SODIUM
     Indication: THROMBOSIS PROPHYLAXIS
     Dosage: DOSAGE FORM: UNKNOWN
     Route: 065
  19. DECADRON [Suspect]
     Active Substance: DEXAMETHASONE
     Dosage: 15 MG, DOSAGE FORM: UNKNOWN
     Route: 048
     Dates: start: 20170320, end: 20171019
  20. DECADRON [Suspect]
     Active Substance: DEXAMETHASONE
     Dosage: 40 MG, UNK
     Route: 048
  21. NINLARO [Suspect]
     Active Substance: IXAZOMIB CITRATE
     Route: 058
  22. TINZAPARIN [Concomitant]
     Active Substance: TINZAPARIN
     Indication: THROMBOSIS PROPHYLAXIS
     Dosage: UNK
     Route: 065
  23. PLATINOL [Suspect]
     Active Substance: CISPLATIN
     Indication: PLASMA CELL MYELOMA
     Dosage: 15 MG, QD, DOSAGE FORM: UNSPECIFIED
     Route: 041
     Dates: start: 20171108, end: 20171111
  24. VELCADE [Concomitant]
     Active Substance: BORTEZOMIB
     Indication: PLASMA CELL MYELOMA
     Dosage: 2 MG, DOSAGE FORM: LYOPHILIZED POWDER
     Route: 058
     Dates: start: 20171125
  25. NINLARO [Suspect]
     Active Substance: IXAZOMIB CITRATE
     Indication: PLASMA CELL MYELOMA
     Dosage: UNK
     Route: 048
     Dates: start: 20170320, end: 20170724
  26. CYCLOPHOSPHAMIDE INJECTION 1G [Suspect]
     Active Substance: CYCLOPHOSPHAMIDE
     Indication: PLASMA CELL MYELOMA
     Dosage: 600 MG, QD
     Route: 041
     Dates: start: 20171108, end: 20171111
  27. ETOPOSIDE. [Suspect]
     Active Substance: ETOPOSIDE
     Indication: PLASMA CELL MYELOMA
     Dosage: 60 MG, QD, DOSAGE FORM: UNKNOWN
     Route: 042
     Dates: start: 20171108, end: 20171111
  28. ZOLEDRONIC ACID [Concomitant]
     Active Substance: ZOLEDRONIC ACID
     Indication: PRODUCT USED FOR UNKNOWN INDICATION
     Dosage: DOSAGE FORM: UNKNOWN
     Route: 065
     Dates: start: 20171115

REACTIONS (2)
  - Diarrhoea haemorrhagic [Recovered/Resolved]
  - Febrile neutropenia [Recovered/Resolved]

NARRATIVE: CASE EVENT DATE: 20170728
